FAERS Safety Report 25683906 (Version 1)
Quarter: 2025Q3

REPORT INFORMATION
  Report Type: Spontaneous
  Country: US (occurrence: US)
  Receive Date: 20250815
  Receipt Date: 20250815
  Transmission Date: 20251020
  Serious: Yes (Hospitalization)
  Sender: MERCK SHARP & DOHME LLC
  Company Number: US-009507513-2319504

PATIENT
  Age: 63 Year
  Sex: Female

DRUGS (11)
  1. KEYTRUDA [Suspect]
     Active Substance: PEMBROLIZUMAB
     Indication: Neoplasm malignant
     Dates: start: 2025, end: 20250722
  2. LENVIMA [Suspect]
     Active Substance: LENVATINIB
     Indication: Neoplasm malignant
     Route: 048
     Dates: start: 20250805, end: 202508
  3. GRANISETRON [Suspect]
     Active Substance: GRANISETRON
     Dates: start: 202508, end: 202508
  4. LABETALOL [Concomitant]
     Active Substance: LABETALOL
  5. JARDIANCE [Concomitant]
     Active Substance: EMPAGLIFLOZIN
  6. ENTRESTO [Concomitant]
     Active Substance: SACUBITRIL\VALSARTAN
  7. FUROSEMIDE [Concomitant]
     Active Substance: FUROSEMIDE
  8. POTASSIUM [Concomitant]
     Active Substance: POTASSIUM
  9. ALBUTEROL [Concomitant]
     Active Substance: ALBUTEROL
  10. PERCOCET [Concomitant]
     Active Substance: ACETAMINOPHEN\OXYCODONE HYDROCHLORIDE
  11. GABAPENTIN [Concomitant]
     Active Substance: GABAPENTIN

REACTIONS (7)
  - Urinary tract infection [Recovering/Resolving]
  - Drug effect less than expected [Unknown]
  - Feeding disorder [Recovering/Resolving]
  - Gait disturbance [Recovering/Resolving]
  - Dizziness [Unknown]
  - Vomiting [Recovering/Resolving]
  - Headache [Recovering/Resolving]

NARRATIVE: CASE EVENT DATE: 20250101
